FAERS Safety Report 8402275-0 (Version None)
Quarter: 2012Q2

REPORT INFORMATION
  Report Type: 
  Country: None (occurrence: None)
  Receive Date: 20120529
  Receipt Date: 20030918
  Transmission Date: 20120825
  Serious: Yes (Life-Threatening, Hospitalization)
  Sender: FDA-Public Use
  Company Number: 02100-JPN-03-0207

PATIENT
  Age: 82 Year
  Sex: Female
  Weight: 46 kg

DRUGS (19)
  1. PLETAL [Suspect]
     Indication: ATRIAL FIBRILLATION
     Dosage: 100 MG, QD, ORAL, 100 MG, BID, ORAL
     Route: 048
     Dates: start: 20030812, end: 20030918
  2. PLETAL [Suspect]
     Indication: MYOCARDIAL INFARCTION
     Dosage: 100 MG, QD, ORAL, 100 MG, BID, ORAL
     Route: 048
     Dates: start: 20030812, end: 20030918
  3. PLETAL [Suspect]
     Indication: ATRIAL FIBRILLATION
     Dosage: 100 MG, QD, ORAL, 100 MG, BID, ORAL
     Route: 048
     Dates: start: 20030616, end: 20030811
  4. PLETAL [Suspect]
     Indication: MYOCARDIAL INFARCTION
     Dosage: 100 MG, QD, ORAL, 100 MG, BID, ORAL
     Route: 048
     Dates: start: 20030616, end: 20030811
  5. LEVOFLOXACIN [Suspect]
     Indication: URINARY TRACT INFECTION
     Dosage: 100 MG, BID, ORAL
     Route: 048
     Dates: start: 20030905, end: 20030908
  6. LASIX [Concomitant]
  7. BANAN [Suspect]
     Indication: URINARY TRACT INFECTION
     Dosage: 100 MG, QD, ORAL
     Route: 048
     Dates: start: 20030816, end: 20030818
  8. ZITHROMAX [Suspect]
  9. SELBEX (TEPRENONE) POULTICE [Concomitant]
  10. FRANDOL (ISOSORBIDE DINITRATE) POULTICE [Concomitant]
  11. ASPENON (APRINDINE HYDROCHLORIDE) [Suspect]
  12. CHOLEBINE (COLESTILAN) GRANULES [Concomitant]
  13. AMPICILLIN [Suspect]
     Indication: URINARY TRACT INFECTION
     Dosage: 250 MG, TID, ORAL
     Route: 048
     Dates: start: 20030819, end: 20030824
  14. SIGMART (NICORANDIL) [Concomitant]
  15. SULPERAZON (CEFOPERAZONE SODIUM, SULBACTAM SODIUM) [Suspect]
     Indication: URINARY TRACT INFECTION
     Dosage: 1 G, BID, IV DRIP
     Route: 041
     Dates: start: 20030725, end: 20030731
  16. SULPERAZON (CEFOPERAZONE SODIUM, SULBACTAM SODIUM) [Suspect]
     Indication: PNEUMONIA
     Dosage: 1 G, BID, IV DRIP
     Route: 041
     Dates: start: 20030725, end: 20030731
  17. CALSLOT (MANIDIPINE HYDROCHLORIDE) [Concomitant]
  18. ALLOPURINOL [Concomitant]
  19. CARVEDILOL [Concomitant]

REACTIONS (4)
  - AGRANULOCYTOSIS [None]
  - RENAL FAILURE CHRONIC [None]
  - CONDITION AGGRAVATED [None]
  - DIALYSIS [None]
